FAERS Safety Report 21123015 (Version 1)
Quarter: 2022Q3

REPORT INFORMATION
  Report Type: Other
  Country: JP (occurrence: None)
  Receive Date: 20220724
  Receipt Date: 20220724
  Transmission Date: 20221027
  Serious: Yes (Hospitalization)
  Sender: FDA-Public Use
  Company Number: JP-Square-000082

PATIENT
  Age: 56 Year
  Sex: Male

DRUGS (6)
  1. ACYCLOVIR [Suspect]
     Active Substance: ACYCLOVIR
     Indication: Ophthalmic herpes zoster
     Dosage: 1,500 MG/DAY
     Route: 042
  2. PREDNISOLONE [Suspect]
     Active Substance: PREDNISOLONE
     Indication: Ophthalmic herpes zoster
     Dosage: 15 MG/DAY
     Route: 048
  3. METHYLPREDNISOLONE [Suspect]
     Active Substance: METHYLPREDNISOLONE
     Indication: Ophthalmic herpes zoster
     Dosage: 250 MG ON DAYS 4 AND 5
     Route: 042
  4. ACYCLOVIR [Suspect]
     Active Substance: ACYCLOVIR
     Indication: Ophthalmic herpes zoster
     Dosage: 250 MG/DAY
     Route: 042
  5. ACYCLOVIR [Suspect]
     Active Substance: ACYCLOVIR
     Indication: Product used for unknown indication
  6. METHYLPREDNISOLONE [Suspect]
     Active Substance: METHYLPREDNISOLONE
     Indication: Ophthalmic herpes zoster
     Dosage: 1,000 MG ON DAYS 1 TO 3
     Route: 042

REACTIONS (10)
  - Keratitis [Recovered/Resolved]
  - Iritis [Recovered/Resolved]
  - Eyelid ptosis [Recovering/Resolving]
  - Eye pain [Recovered/Resolved]
  - Erythema [Unknown]
  - Blister [Unknown]
  - Hyperaemia [Unknown]
  - Eye movement disorder [Recovered/Resolved]
  - Hypoaesthesia [Unknown]
  - Condition aggravated [Unknown]
